FAERS Safety Report 5147576-7 (Version None)
Quarter: 2006Q4

REPORT INFORMATION
  Report Type: 
  Country: None (occurrence: None)
  Receive Date: 20061106
  Receipt Date: 20061025
  Transmission Date: 20070319
  Serious: Yes (Hospitalization, Disabling, Other)
  Sender: FDA-Public Use
  Company Number: 2006129856

PATIENT
  Age: 47 Year
  Sex: Male

DRUGS (7)
  1. XANAX [Suspect]
     Dosage: (1 IN 1 TOTAL), ORAL
     Route: 048
     Dates: start: 20021103, end: 20021103
  2. PAXIL [Suspect]
     Dosage: 30 MG, ORAL
     Route: 048
  3. ACETAMINOPHEN [Suspect]
     Dosage: (1 IN 1 TOTAL), ORAL
     Route: 048
     Dates: start: 20021103, end: 20021103
  4. BUSPIRONE HCL [Concomitant]
  5. LORAZEPAM [Concomitant]
  6. CLONAZEPAM [Concomitant]
  7. RAMIPRIL [Concomitant]

REACTIONS (13)
  - AGGRESSION [None]
  - AMNESIA [None]
  - ANAEMIA [None]
  - ANXIETY [None]
  - BIPOLAR I DISORDER [None]
  - DEPRESSION [None]
  - DYSPHAGIA [None]
  - HYPERTENSION [None]
  - MULTIPLE DRUG OVERDOSE INTENTIONAL [None]
  - PAIN [None]
  - SCAR [None]
  - SUICIDE ATTEMPT [None]
  - THERMAL BURN [None]
